FAERS Safety Report 13066182 (Version 2)
Quarter: 2017Q1

REPORT INFORMATION
  Report Type: Spontaneous
  Country: US (occurrence: US)
  Receive Date: 20161227
  Receipt Date: 20170110
  Transmission Date: 20170428
  Serious: No
  Sender: FDA-Public Use
  Company Number: US-PFIZER INC-2016585570

PATIENT
  Sex: Female

DRUGS (4)
  1. ARTIFICIAL TEARS [Suspect]
     Active Substance: GLYCERIN\HYPROMELLOSES\POLYETHYLENE GLYCOL 400
     Indication: DRY EYE
     Dosage: UNK
  2. RESTASIS [Suspect]
     Active Substance: CYCLOSPORINE
     Indication: DRY EYE
     Dosage: UNK
     Route: 047
     Dates: start: 2006
  3. GABAPENTIN. [Suspect]
     Active Substance: GABAPENTIN
     Dosage: UNK
     Dates: start: 2009
  4. TOPAMAX [Suspect]
     Active Substance: TOPIRAMATE
     Dosage: UNK
     Dates: start: 201607

REACTIONS (6)
  - Condition aggravated [Not Recovered/Not Resolved]
  - Ocular hyperaemia [Unknown]
  - Photophobia [Unknown]
  - Weight increased [Not Recovered/Not Resolved]
  - Lacrimation increased [Unknown]
  - Dry eye [Not Recovered/Not Resolved]
